FAERS Safety Report 14090625 (Version 1)
Quarter: 2017Q4

REPORT INFORMATION
  Report Type: Spontaneous
  Country: US (occurrence: US)
  Receive Date: 20171015
  Receipt Date: 20171015
  Transmission Date: 20180321
  Serious: No
  Sender: FDA-Public Use
  Company Number: US-SA-2017SA135463

PATIENT
  Age: 39 Year
  Sex: Female

DRUGS (10)
  1. BACLOFEN. [Concomitant]
     Active Substance: BACLOFEN
  2. MAGNESIUM OXIDE. [Concomitant]
     Active Substance: MAGNESIUM OXIDE
  3. SYMBICORT [Concomitant]
     Active Substance: BUDESONIDE\FORMOTEROL FUMARATE DIHYDRATE
  4. ADDERALL [Concomitant]
     Active Substance: AMPHETAMINE ASPARTATE\AMPHETAMINE SULFATE\DEXTROAMPHETAMINE SACCHARATE\DEXTROAMPHETAMINE SULFATE
  5. ALLEGRA [Concomitant]
     Active Substance: FEXOFENADINE HYDROCHLORIDE
  6. FLONASE [Concomitant]
     Active Substance: FLUTICASONE PROPIONATE
  7. FLAXSEED [Concomitant]
     Active Substance: FLAX SEED
  8. AUBAGIO [Suspect]
     Active Substance: TERIFLUNOMIDE
     Indication: MULTIPLE SCLEROSIS
     Route: 048
  9. SINGULAIR [Concomitant]
     Active Substance: MONTELUKAST SODIUM
  10. VITAMIN D3 [Concomitant]
     Active Substance: CHOLECALCIFEROL

REACTIONS (1)
  - Tooth disorder [Unknown]

NARRATIVE: CASE EVENT DATE: 2016
